FAERS Safety Report 7001087-2 (Version None)
Quarter: 2010Q3

REPORT INFORMATION
  Report Type: 
  Country: None (occurrence: None)
  Receive Date: 20100920
  Receipt Date: 20100909
  Transmission Date: 20110219
  Serious: Yes (Hospitalization, Other)
  Sender: FDA-Public Use
  Company Number: US-ROCHE-695944

PATIENT
  Sex: Male
  Weight: 83.9 kg

DRUGS (3)
  1. ACCUTANE [Suspect]
     Route: 048
     Dates: start: 19910522, end: 19910603
  2. ACCUTANE [Suspect]
     Route: 048
     Dates: start: 19910610, end: 19911113
  3. ACCUTANE [Suspect]
     Route: 048
     Dates: start: 19980130, end: 19980611

REACTIONS (75)
  - ANAL FISSURE [None]
  - ANAPHYLACTIC REACTION [None]
  - ANXIETY [None]
  - ARTHRITIS [None]
  - ATELECTASIS [None]
  - AUTOIMMUNE PANCREATITIS [None]
  - BACK PAIN [None]
  - BLOOD CHOLESTEROL INCREASED [None]
  - BLOOD DISORDER [None]
  - BLOOD TRIGLYCERIDES INCREASED [None]
  - CELLULITIS [None]
  - CHEILITIS [None]
  - CHOLELITHIASIS [None]
  - COAGULOPATHY [None]
  - COLITIS ULCERATIVE [None]
  - CONJUNCTIVITIS BACTERIAL [None]
  - CONTUSION [None]
  - CORNEAL ABRASION [None]
  - CROHN'S DISEASE [None]
  - DEEP VEIN THROMBOSIS [None]
  - DEPRESSION [None]
  - DIZZINESS [None]
  - DRUG EFFECT DECREASED [None]
  - DRUG HYPERSENSITIVITY [None]
  - ENTEROCOLITIS INFECTIOUS [None]
  - ERYTHEMA OF EYELID [None]
  - EYE DISCHARGE [None]
  - EYE INFECTION STAPHYLOCOCCAL [None]
  - EYE IRRITATION [None]
  - EYELID OEDEMA [None]
  - FRUSTRATION [None]
  - GALLBLADDER DISORDER [None]
  - GASTRIC DISORDER [None]
  - GASTROENTERITIS [None]
  - GASTROINTESTINAL DISORDER [None]
  - GASTROOESOPHAGEAL REFLUX DISEASE [None]
  - GOITRE [None]
  - H1N1 INFLUENZA [None]
  - HAEMORRHAGE [None]
  - HEADACHE [None]
  - HYPERCOAGULATION [None]
  - HYPOTHYROIDISM [None]
  - INFLAMMATORY BOWEL DISEASE [None]
  - INSOMNIA [None]
  - INTERNATIONAL NORMALISED RATIO INCREASED [None]
  - INTESTINAL HAEMORRHAGE [None]
  - IRRITABILITY [None]
  - IRRITABLE BOWEL SYNDROME [None]
  - MUSCULOSKELETAL STIFFNESS [None]
  - MYALGIA [None]
  - NAUSEA [None]
  - NECK PAIN [None]
  - NIGHT BLINDNESS [None]
  - PANCREATITIS ACUTE [None]
  - PANCREATITIS CHRONIC [None]
  - PNEUMONIA [None]
  - PROTHROMBIN TIME PROLONGED [None]
  - PULMONARY EMBOLISM [None]
  - PURULENT DISCHARGE [None]
  - RESPIRATORY TRACT INFECTION [None]
  - RESTLESSNESS [None]
  - ROAD TRAFFIC ACCIDENT [None]
  - SCOLIOSIS [None]
  - SKELETAL INJURY [None]
  - SLUGGISHNESS [None]
  - SOMNOLENCE [None]
  - STOMATITIS [None]
  - TACHYPHRENIA [None]
  - TENSION [None]
  - THROMBOPHLEBITIS SUPERFICIAL [None]
  - THROMBOSIS [None]
  - THYROID DISORDER [None]
  - TINEA INFECTION [None]
  - VISION BLURRED [None]
  - WEIGHT DECREASED [None]
